FAERS Safety Report 6270025-2 (Version None)
Quarter: 2009Q3

REPORT INFORMATION
  Report Type: 
  Country: None (occurrence: None)
  Receive Date: 20090716
  Receipt Date: 20090708
  Transmission Date: 20100115
  Serious: Yes (Other)
  Sender: FDA-Public Use
  Company Number: US-BAYER-200921677NA

PATIENT
  Age: 31 Year
  Sex: Female
  Weight: 59 kg

DRUGS (1)
  1. MIRENA [Suspect]
     Indication: CONTRACEPTION
     Dosage: CONTINUOUS DELIVERY
     Route: 015
     Dates: start: 20070101, end: 20090608

REACTIONS (5)
  - BLADDER DISORDER [None]
  - IUCD COMPLICATION [None]
  - OVARIAN CYST [None]
  - PAIN [None]
  - SMEAR CERVIX ABNORMAL [None]
